FAERS Safety Report 8009041-9 (Version None)
Quarter: 2011Q4

REPORT INFORMATION
  Report Type: 
  Country: None (occurrence: None)
  Receive Date: 20111227
  Receipt Date: 20111220
  Transmission Date: 20120403
  Serious: Yes (Other)
  Sender: FDA-Public Use
  Company Number: JP-B.I. PHARMACEUTICALS,INC./RIDGEFIELD-2011-EU-01255GD

PATIENT
  Sex: Female

DRUGS (1)
  1. DABIGATRAN ETEXILATE [Suspect]

REACTIONS (2)
  - CEREBRAL ARTERY EMBOLISM [None]
  - CARDIAC DISORDER [None]
